FAERS Safety Report 10046265 (Version 1)
Quarter: 2014Q1

REPORT INFORMATION
  Report Type: Spontaneous
  Country: US (occurrence: US)
  Receive Date: 20140331
  Receipt Date: 20140331
  Transmission Date: 20141002
  Serious: Yes (Other)
  Sender: FDA-Public Use
  Company Number: 2014SP001723

PATIENT
  Age: 40 Year
  Sex: Female

DRUGS (5)
  1. NEVIRAPINE [Suspect]
     Indication: PRODUCT USED FOR UNKNOWN INDICATION
     Route: 048
  2. ABACAVIR SULFATE [Suspect]
     Route: 048
     Dates: start: 20131112
  3. LAMIVUDINE [Suspect]
     Route: 048
     Dates: start: 20131112
  4. TENOFOVIR DISOPROXIL FUMARATE [Suspect]
     Route: 048
     Dates: end: 20131112
  5. EMTRICITABINE [Suspect]
     Route: 048
     Dates: end: 20131112

REACTIONS (3)
  - Abortion spontaneous [Unknown]
  - Disseminated tuberculosis [Unknown]
  - Exposure during pregnancy [Unknown]
